FAERS Safety Report 10459040 (Version 4)
Quarter: 2015Q1

REPORT INFORMATION
  Report Type: Report from Study
  Country: US (occurrence: US)
  Receive Date: 20140917
  Receipt Date: 20150326
  Transmission Date: 20150720
  Serious: Yes (Hospitalization, Other)
  Sender: FDA-Public Use
  Company Number: US-BAYER-2014-136469

PATIENT
  Age: 68 Year
  Sex: Male

DRUGS (3)
  1. NEXAVAR [Suspect]
     Active Substance: SORAFENIB
     Indication: HEPATIC CANCER
     Dosage: UNK
     Dates: start: 20150223
  2. NEXAVAR [Suspect]
     Active Substance: SORAFENIB
     Indication: HEPATIC CANCER
     Dosage: 200 MG, BID
     Route: 048
     Dates: start: 20140823, end: 20140911
  3. NEXAVAR [Suspect]
     Active Substance: SORAFENIB
     Indication: HEPATIC CANCER
     Dosage: 200 MG, BID
     Route: 048
     Dates: start: 20141105, end: 201501

REACTIONS (15)
  - Ear infection [Recovering/Resolving]
  - Asthenia [None]
  - Oesophageal ulcer haemorrhage [None]
  - Cough [None]
  - Fear of disease [None]
  - Disorientation [None]
  - Dysphonia [None]
  - Haematemesis [None]
  - Hepatic enzyme increased [None]
  - Hepatic enzyme increased [None]
  - Haematemesis [None]
  - Anaemia [None]
  - Aphagia [None]
  - Anaemia [None]
  - Fatigue [None]

NARRATIVE: CASE EVENT DATE: 20140901
